FAERS Safety Report 23497236 (Version 1)
Quarter: 2024Q1

REPORT INFORMATION
  Report Type: Spontaneous
  Country: GB (occurrence: None)
  Receive Date: 20240208
  Receipt Date: 20240208
  Transmission Date: 20240410
  Serious: Yes (Other)
  Sender: FDA-Public Use
  Company Number: 2024A031561

PATIENT
  Age: 77 Year
  Sex: Male
  Weight: 57 kg

DRUGS (2)
  1. DAPAGLIFLOZIN [Suspect]
     Active Substance: DAPAGLIFLOZIN
     Indication: Type 2 diabetes mellitus
     Dosage: TAKE ONE TABLET ONCE A DAY
     Route: 048
     Dates: start: 20240109, end: 20240201
  2. AMOXICILLIN [Concomitant]
     Active Substance: AMOXICILLIN
     Indication: Adverse drug reaction
     Dosage: ONE TO BE TAKEN THREE TIMES A DAY
     Dates: start: 20231122, end: 20231221

REACTIONS (6)
  - Fatigue [Recovered/Resolved]
  - Hypoglycaemia [Recovered/Resolved]
  - Hypotension [Recovered/Resolved]
  - Weight decreased [Recovering/Resolving]
  - Back pain [Recovering/Resolving]
  - Pollakiuria [Recovered/Resolved]

NARRATIVE: CASE EVENT DATE: 20240109
